FAERS Safety Report 5332070-0 (Version None)
Quarter: 2007Q2

REPORT INFORMATION
  Report Type: 
  Country: None (occurrence: None)
  Receive Date: 20070521
  Receipt Date: 20070508
  Transmission Date: 20071010
  Serious: Yes (Other)
  Sender: FDA-Public Use
  Company Number: 2007SP009138

PATIENT
  Sex: Male

DRUGS (1)
  1. COPPERTONE CONTINUOUS SPRAY SPF 50 [Suspect]
     Indication: DRUG USE FOR UNKNOWN INDICATION
     Dosage: TOP
     Route: 061

REACTIONS (1)
  - NEUROLOGICAL SYMPTOM [None]
